FAERS Safety Report 7515099-3 (Version None)
Quarter: 2011Q2

REPORT INFORMATION
  Report Type: 
  Country: None (occurrence: None)
  Receive Date: 20110601
  Receipt Date: 20091027
  Transmission Date: 20111010
  Serious: Yes (Other)
  Sender: FDA-Public Use
  Company Number: US-BAYER-2011-008780

PATIENT
  Age: 53 Year
  Sex: Male
  Weight: 86 kg

DRUGS (36)
  1. TRASYLOL [Suspect]
     Indication: HEART VALVE REPLACEMENT
     Dosage: 1 ML, TEST DOSE
     Route: 042
     Dates: start: 20050207, end: 20050208
  2. LEVOXYL [Concomitant]
     Dosage: 0.088 ?G, QD
     Route: 048
     Dates: start: 20020101
  3. FENTANYL [Concomitant]
     Dosage: TITRATED
     Route: 042
     Dates: start: 20050207, end: 20050207
  4. NITROGLYCERIN [Concomitant]
     Dosage: 25 ?G, UNK
     Route: 042
     Dates: start: 20050207, end: 20050207
  5. PEPCID [Concomitant]
     Dosage: 20 MG, UNK
     Route: 042
     Dates: start: 20050207, end: 20050207
  6. MANNITOL [Concomitant]
     Dosage: 25 G, UNK
     Route: 042
     Dates: start: 20050207, end: 20050207
  7. VERSED [Concomitant]
     Dosage: 5 MG, UNK
     Route: 042
     Dates: start: 20050207, end: 20050207
  8. PROTAMINE SULFATE [Concomitant]
     Dosage: 400 MG, UNK
     Route: 042
     Dates: start: 20050207, end: 20050207
  9. WARFARIN SODIUM [Concomitant]
     Dosage: 5.0 MG, 5 TIMES A WEEK
     Route: 048
     Dates: start: 20020101
  10. METOPROLOL TARTRATE [Concomitant]
     Dosage: 50 MG, QD
     Route: 048
     Dates: start: 20020101
  11. NOREPINEPHRINE BITARTRATE [Concomitant]
     Dosage: UNK
     Route: 042
     Dates: start: 20050207, end: 20050213
  12. DESMOPRESSIN ACETATE [Concomitant]
     Dosage: 25 ?G, UNK
     Route: 042
     Dates: start: 20050207, end: 20050207
  13. MORPHINE SULFATE [Concomitant]
     Dosage: 2 G, UNK
     Route: 042
     Dates: start: 20050207, end: 20050207
  14. OXYMETAZOLINE HYDROCHLORIDE [Concomitant]
     Dosage: UNK
     Dates: start: 20070207
  15. DIGOXIN [Concomitant]
     Dosage: 0.25 MG, QD
     Route: 048
     Dates: start: 20020101
  16. WARFARIN SODIUM [Concomitant]
     Dosage: 2.5 MG, 2 TIMES A WEEK
     Route: 048
  17. PLAVIX [Concomitant]
     Dosage: 75 MG, QD
     Route: 048
  18. CALCIUM CHLORIDE [Concomitant]
     Dosage: 1 G, UNK
     Route: 042
     Dates: start: 20050207, end: 20050207
  19. CALCIUM CHLORIDE [Concomitant]
     Dosage: 500 MG, UNK
     Route: 042
     Dates: start: 20050207, end: 20050207
  20. DECADRON [Concomitant]
     Dosage: 20 MG, UNK
     Route: 042
     Dates: start: 20050207, end: 20050207
  21. TRASYLOL [Suspect]
     Indication: PULMONARY ARTERY THERAPEUTIC PROCEDURE
     Dosage: 200 ML, PUMP PRIME
     Route: 042
     Dates: start: 20050207, end: 20050208
  22. POTASSIUM CHLORIDE [Concomitant]
     Dosage: 10 MEQ
     Route: 048
  23. ANCEF [Concomitant]
     Dosage: 1 G, UNK
     Route: 042
     Dates: start: 20050207, end: 20050207
  24. PAVULON [Concomitant]
     Dosage: 13MG/KG
     Route: 042
     Dates: start: 20050207, end: 20050207
  25. HEPARIN [Concomitant]
     Dosage: 35000 U, UNK
     Route: 042
     Dates: start: 20050207, end: 20050207
  26. MILRINONE [Concomitant]
     Dosage: UNK
     Route: 042
     Dates: start: 20050207, end: 20050207
  27. PLATELETS [Concomitant]
     Dosage: 2 U, UNK
     Route: 042
     Dates: start: 20050207
  28. AMIODARONE HCL [Concomitant]
     Dosage: UNK
     Dates: start: 20050207
  29. CORTISONE ACETATE [Concomitant]
     Dosage: 240 MG, QD
     Route: 048
  30. TRASYLOL [Suspect]
     Dosage: 50ML/HR, INFUSION
     Route: 042
     Dates: start: 20050207, end: 20050208
  31. ACETYLSALICYLIC ACID SRT [Concomitant]
     Dosage: 81 MG, QD
     Route: 048
     Dates: start: 20020101
  32. LASIX [Concomitant]
     Dosage: 40 MG, QD
     Route: 048
  33. LASIX [Concomitant]
     Dosage: 20 MG, UNK
     Route: 042
     Dates: start: 20050207, end: 20050207
  34. INSULIN [Concomitant]
     Dosage: 8 U, UNK
     Route: 042
     Dates: start: 20050207, end: 20050207
  35. DOPAMINE HCL [Concomitant]
     Dosage: 5 MCG/KG/MIN
     Route: 042
     Dates: start: 20050207, end: 20050207
  36. DOBUTAMINE HYDROCHLORIDE [Concomitant]
     Dosage: UNK
     Route: 048
     Dates: start: 20050207

REACTIONS (11)
  - RENAL IMPAIRMENT [None]
  - UNEVALUABLE EVENT [None]
  - STRESS [None]
  - RENAL INJURY [None]
  - RENAL FAILURE [None]
  - MULTI-ORGAN FAILURE [None]
  - PAIN [None]
  - EMOTIONAL DISTRESS [None]
  - ANXIETY [None]
  - FEAR [None]
  - INJURY [None]
